FAERS Safety Report 14814083 (Version 1)
Quarter: 2018Q2

REPORT INFORMATION
  Report Type: Spontaneous
  Country: US (occurrence: US)
  Receive Date: 20180417
  Receipt Date: 20180417
  Transmission Date: 20180711
  Serious: No
  Sender: FDA-Public Use
  Company Number: None

PATIENT
  Age: 82 Year
  Sex: Female
  Weight: 57.61 kg

DRUGS (7)
  1. AMITIZA [Suspect]
     Active Substance: LUBIPROSTONE
     Indication: CONSTIPATION
     Dosage: ?          QUANTITY:2 DF DOSAGE FORM;?
     Route: 048
     Dates: start: 20180225, end: 20180303
  2. VITAMIN D3 [Concomitant]
     Active Substance: CHOLECALCIFEROL
  3. AMANTADINE. [Concomitant]
     Active Substance: AMANTADINE HYDROCHLORIDE
  4. STALEVO [Concomitant]
     Active Substance: CARBIDOPA\ENTACAPONE\LEVODOPA
  5. ASPIRIN. [Concomitant]
     Active Substance: ASPIRIN
  6. ROPINIROLE. [Concomitant]
     Active Substance: ROPINIROLE
  7. VITAMIN B12 [Concomitant]
     Active Substance: CYANOCOBALAMIN

REACTIONS (6)
  - Scratch [None]
  - Gastric dilatation [None]
  - Abdominal pain upper [None]
  - Pruritus [None]
  - Tremor [None]
  - Abdominal distension [None]

NARRATIVE: CASE EVENT DATE: 20180225
